FAERS Safety Report 4964121-7 (Version None)
Quarter: 2006Q1

REPORT INFORMATION
  Report Type: 
  Country: None (occurrence: None)
  Receive Date: 20060330
  Receipt Date: 20060313
  Transmission Date: 20060701
  Serious: Yes (Hospitalization, Other)
  Sender: FDA-Public Use
  Company Number: US200603001715

PATIENT
  Age: 78 Year
  Sex: Female
  Weight: 55.8 kg

DRUGS (16)
  1. FORTEO [Suspect]
     Indication: OSTEOPOROSIS
     Dates: start: 20040402, end: 20060223
  2. FORTEO [Concomitant]
  3. DIGOXIN (DIGOXIN UNKNOWN FORMULATION) [Concomitant]
  4. IMDUR [Concomitant]
  5. ZOLOFT [Concomitant]
  6. LORAZEPAM [Concomitant]
  7. DETROL - SLOW RELEASE (TOLTERODINE L-TARTRATE) [Concomitant]
  8. FLONASE [Concomitant]
  9. QUINAMM (QUININE SULFATE) [Concomitant]
  10. CELEBREX/UNK/ (CELECOXIB) [Concomitant]
  11. OSCAL (CALCIUM CARBONATE) [Concomitant]
  12. ACIPHEX [Concomitant]
  13. MULTIPLE VITAMINS (ASCORBIC ACID, ERGOCALCIFEROL, FOLIC ACID, RETINOL, [Concomitant]
  14. ALBUTEROL [Concomitant]
  15. PULMICORT (BUDESONIDE) AEROSOL (SPRAY AND INHALATION) [Concomitant]
  16. OXYGEN (OXYGEN) [Concomitant]

REACTIONS (1)
  - HIP FRACTURE [None]
